FAERS Safety Report 4788423-2 (Version None)
Quarter: 2005Q3

REPORT INFORMATION
  Report Type: 
  Country: None (occurrence: None)
  Receive Date: 20050921
  Receipt Date: 20050119
  Transmission Date: 20060218
  Serious: Yes (Hospitalization)
  Sender: FDA-Public Use
  Company Number: 2005015749

PATIENT
  Age: 42 Year
  Sex: Male

DRUGS (5)
  1. DILANTIN [Suspect]
     Indication: ENCEPHALITIS HERPES
     Dosage: 900 MG (300 MG, 3 IN 1 D)
     Dates: start: 20050102, end: 20050114
  2. CEREBYX [Suspect]
     Indication: ENCEPHALITIS HERPES
     Dosage: 900 MG (300 MG, 3 IN 1 D)
     Dates: start: 20050114
  3. ACYCLOVIR [Concomitant]
  4. AZTREONAM [Concomitant]
  5. LACTULOSE [Concomitant]

REACTIONS (1)
  - PYREXIA [None]
